FAERS Safety Report 5504838-9 (Version None)
Quarter: 2007Q4

REPORT INFORMATION
  Report Type: 
  Country: None (occurrence: None)
  Receive Date: 20071102
  Receipt Date: 20071024
  Transmission Date: 20080405
  Serious: Yes (Other)
  Sender: FDA-Public Use
  Company Number: PHBS2007BR16708

PATIENT
  Age: 75 Year
  Sex: Female
  Weight: 65 kg

DRUGS (10)
  1. CODATEN [Suspect]
     Indication: BONE PAIN
     Dosage: 1 DF, Q6H
     Route: 048
     Dates: start: 20071003
  2. FLUOXETINE [Concomitant]
     Dosage: 1 DF, QD
     Route: 048
  3. MELOXICAM [Concomitant]
     Dosage: 1 DF, QD
     Route: 048
  4. DEFLAZACORT [Concomitant]
     Dosage: 1 DF, QD
     Route: 048
  5. NIMODIPINE [Concomitant]
     Dosage: 30 MG, BID
     Route: 048
  6. RIVOTRIL [Concomitant]
     Indication: INSOMNIA
     Dosage: 1 MG, QHS
     Route: 048
  7. CHLORTHALIDONE [Concomitant]
     Indication: HYPERTENSION
  8. ATENOLOL [Concomitant]
     Indication: HYPERTENSION
  9. AMOXICILLIN [Concomitant]
     Indication: SINUSITIS
  10. VOLTAREN [Suspect]
     Indication: BONE PAIN
     Dates: start: 20071022

REACTIONS (4)
  - BLOOD PRESSURE DECREASED [None]
  - HAEMATOMA [None]
  - PRURITUS GENERALISED [None]
  - RASH MACULO-PAPULAR [None]
